FAERS Safety Report 22206086 (Version 1)
Quarter: 2023Q2

REPORT INFORMATION
  Report Type: Spontaneous
  Country: US (occurrence: None)
  Receive Date: 20230412
  Receipt Date: 20230412
  Transmission Date: 20230722
  Serious: Yes (Disabling, Other)
  Sender: FDA-Public Use
  Company Number: None

PATIENT
  Age: 95 Year
  Sex: Female
  Weight: 48.6 kg

DRUGS (6)
  1. ARIPIPRAZOLE [Suspect]
     Active Substance: ARIPIPRAZOLE
     Indication: Aggression
     Dosage: OTHER QUANTITY : 1 TABLET(S);?
     Route: 048
  2. Aripiprazole (Abilify) 2mg PO QD [Concomitant]
  3. Memantine 10mg PO BID [Concomitant]
  4. Eye MVit 1PO BID [Concomitant]
  5. Vit B12 1 tab PO BID [Concomitant]
  6. Tylenol 325mg 2 tabs PO PRN [Concomitant]

REACTIONS (2)
  - Adverse reaction [None]
  - Wrong technique in product usage process [None]

NARRATIVE: CASE EVENT DATE: 20230410
